FAERS Safety Report 23644830 (Version 1)
Quarter: 2024Q1

REPORT INFORMATION
  Report Type: Spontaneous
  Country: CA (occurrence: CA)
  Receive Date: 20240318
  Receipt Date: 20240318
  Transmission Date: 20240409
  Serious: Yes (Other)
  Sender: FDA-Public Use
  Company Number: CA-002147023-NVSC2024CA054857

PATIENT

DRUGS (4)
  1. RANIBIZUMAB [Suspect]
     Active Substance: RANIBIZUMAB
     Indication: Polypoidal choroidal vasculopathy
     Dosage: UNK
     Route: 031
  2. BROLUCIZUMAB [Suspect]
     Active Substance: BROLUCIZUMAB
     Indication: Polypoidal choroidal vasculopathy
     Dosage: UNK
     Route: 031
  3. AFLIBERCEPT [Suspect]
     Active Substance: AFLIBERCEPT
     Indication: Polypoidal choroidal vasculopathy
     Dosage: UNK
     Route: 031
  4. BEVACIZUMAB [Suspect]
     Active Substance: BEVACIZUMAB
     Indication: Polypoidal choroidal vasculopathy
     Dosage: UNK
     Route: 031

REACTIONS (3)
  - Subretinal fluid [Unknown]
  - Off label use [Unknown]
  - Product use issue [Unknown]
